FAERS Safety Report 19326798 (Version 1)
Quarter: 2021Q2

REPORT INFORMATION
  Report Type: Spontaneous
  Country: DE (occurrence: DE)
  Receive Date: 20210528
  Receipt Date: 20210528
  Transmission Date: 20210717
  Serious: Yes (Hospitalization, Disabling, Other)
  Sender: FDA-Public Use
  Company Number: DE-SA-2021SA169644

PATIENT
  Age: 54 Year
  Sex: Female
  Weight: 55 kg

DRUGS (6)
  1. L?THYROXIN [LEVOTHYROXINE SODIUM] [Concomitant]
     Active Substance: LEVOTHYROXINE SODIUM
     Indication: HYPOTHYROIDISM
     Dosage: 75 UG, QD
  2. CETEBE ABWEHR PLUS [Concomitant]
     Dosage: UNK UNK, BID
  3. DEKRISTOL [Concomitant]
     Active Substance: CHOLECALCIFEROL
  4. LEMTRADA [Suspect]
     Active Substance: ALEMTUZUMAB
     Indication: MULTIPLE SCLEROSIS
     Dosage: 12 MG
     Dates: start: 20170120, end: 20170124
  5. LEMTRADA [Suspect]
     Active Substance: ALEMTUZUMAB
     Dosage: 12 MG
     Dates: start: 20180220, end: 20180222
  6. METHIONIN [Concomitant]
     Active Substance: METHIONINE
     Dosage: 500 MG, TID

REACTIONS (30)
  - Urinary sediment present [Recovered/Resolved]
  - Extensor plantar response [Unknown]
  - White blood cell count increased [Unknown]
  - Red blood cells urine [Recovered/Resolved]
  - Glomerular filtration rate decreased [Recovered/Resolved]
  - Uhthoff^s phenomenon [Recovered/Resolved]
  - Gait disturbance [Unknown]
  - C-reactive protein increased [Unknown]
  - Lymphocyte percentage increased [Unknown]
  - Urogenital disorder [Recovered/Resolved]
  - White blood cells urine positive [Recovered/Resolved]
  - Pyrexia [Recovered/Resolved]
  - Muscular weakness [Unknown]
  - Bacteriuria [Recovered/Resolved]
  - Nitrite urine present [Recovered/Resolved]
  - Multiple sclerosis relapse [Unknown]
  - Urinary tract infection [Recovered/Resolved]
  - Blood urine present [Recovered/Resolved]
  - Urine ketone body present [Recovered/Resolved]
  - Protein urine present [Recovered/Resolved]
  - Multiple sclerosis [Unknown]
  - Coordination abnormal [Unknown]
  - Dysarthria [Unknown]
  - Walking disability [Unknown]
  - Dysuria [Unknown]
  - Dysstasia [Recovered/Resolved]
  - Hypoaesthesia [Unknown]
  - Condition aggravated [Unknown]
  - Blood thromboplastin decreased [Unknown]
  - Neutrophil percentage increased [Unknown]

NARRATIVE: CASE EVENT DATE: 2018
